FAERS Safety Report 5510144-9 (Version None)
Quarter: 2007Q4

REPORT INFORMATION
  Report Type: 
  Country: None (occurrence: None)
  Receive Date: 20071108
  Receipt Date: 20071022
  Transmission Date: 20080405
  Serious: Yes (Hospitalization)
  Sender: FDA-Public Use
  Company Number: FI-JNJFOC-20071004579

PATIENT
  Sex: Male

DRUGS (3)
  1. REMICADE [Suspect]
  2. REMICADE [Suspect]
     Indication: IRITIS
  3. ANTIHISTAMINES [Concomitant]
     Indication: PREMEDICATION

REACTIONS (4)
  - ABDOMINAL PAIN UPPER [None]
  - COUGH [None]
  - DYSPNOEA [None]
  - INFUSION RELATED REACTION [None]
